FAERS Safety Report 7308343-9 (Version None)
Quarter: 2011Q1

REPORT INFORMATION
  Report Type: 
  Country: None (occurrence: None)
  Receive Date: 20110223
  Receipt Date: 20110216
  Transmission Date: 20110831
  Serious: Yes (Other)
  Sender: FDA-Public Use
  Company Number: B0700176A

PATIENT
  Age: 65 Year
  Sex: Male

DRUGS (3)
  1. ASPIRIN [Concomitant]
  2. SUSTIVA [Suspect]
     Dates: start: 20050101
  3. COMBIVIR [Suspect]
     Dates: start: 20050101

REACTIONS (1)
  - DEPRESSION [None]
